FAERS Safety Report 9589642 (Version 2)
Quarter: 2013Q4

REPORT INFORMATION
  Report Type: Spontaneous
  Country: US (occurrence: US)
  Receive Date: 20131003
  Receipt Date: 20131003
  Transmission Date: 20140711
  Serious: No
  Sender: FDA-Public Use
  Company Number: US-AMGEN-USASP2012064020

PATIENT
  Age: 54 Year
  Sex: Female
  Weight: 160 kg

DRUGS (3)
  1. ENBREL [Suspect]
     Indication: PSORIASIS
     Dosage: 50 MG, 2 TIMES/WK
     Route: 058
  2. MOTRIN [Concomitant]
     Dosage: 400 MG, UNK
     Route: 048
  3. MULTIVITAMINS, PLAIN [Concomitant]
     Dosage: UNK
     Route: 048

REACTIONS (4)
  - Dyspepsia [Unknown]
  - Abdominal distension [Unknown]
  - Weight increased [Unknown]
  - Injection site pain [Recovered/Resolved]
